FAERS Safety Report 21409303 (Version 1)
Quarter: 2022Q4

REPORT INFORMATION
  Report Type: Spontaneous
  Country: US (occurrence: US)
  Receive Date: 20221004
  Receipt Date: 20221004
  Transmission Date: 20230113
  Serious: Yes (Other)
  Sender: FDA-Public Use
  Company Number: US-BAUSCHBL-2022BNL000796

PATIENT
  Sex: Male

DRUGS (1)
  1. ADVANCED EYE RELIEF DRY EYE REJUVENATION [Suspect]
     Active Substance: GLYCERIN\PROPYLENE GLYCOL
     Indication: Dry eye
     Route: 047
     Dates: start: 202209, end: 202209

REACTIONS (4)
  - Iritis [Unknown]
  - Condition aggravated [Unknown]
  - Instillation site irritation [Unknown]
  - Instillation site pain [Unknown]

NARRATIVE: CASE EVENT DATE: 20220901
